FAERS Safety Report 5166412-6 (Version None)
Quarter: 2006Q4

REPORT INFORMATION
  Report Type: 
  Country: None (occurrence: None)
  Receive Date: 20061129
  Receipt Date: 20061117
  Transmission Date: 20070319
  Serious: Yes (Hospitalization)
  Sender: FDA-Public Use
  Company Number: CERZ-11404

PATIENT
  Age: 39 Year
  Sex: Female
  Weight: 90.4 kg

DRUGS (1)
  1. CEREZYME [Suspect]
     Indication: GAUCHER'S DISEASE
     Dosage: 30 UG/KG Q2WKS IV
     Route: 042

REACTIONS (1)
  - ARTHROPATHY [None]
